FAERS Safety Report 6626216-1 (Version None)
Quarter: 2010Q1

REPORT INFORMATION
  Report Type: 
  Country: None (occurrence: None)
  Receive Date: 20100309
  Receipt Date: 20100309
  Transmission Date: 20100710
  Serious: Yes (Hospitalization, Other)
  Sender: FDA-Public Use
  Company Number: None

PATIENT
  Age: 42 Year
  Sex: Female
  Weight: 61.2356 kg

DRUGS (1)
  1. POLYSPORIN [Suspect]
     Indication: MOLE EXCISION
     Dosage: 1 DOSE 1 TIME
     Dates: start: 20100302, end: 20100304

REACTIONS (4)
  - BLISTER [None]
  - BURNING SENSATION [None]
  - RASH [None]
  - SECRETION DISCHARGE [None]
